FAERS Safety Report 12457011 (Version 2)
Quarter: 2016Q2

REPORT INFORMATION
  Report Type: Spontaneous
  Country: US (occurrence: ES)
  Receive Date: 20160610
  Receipt Date: 20160616
  Transmission Date: 20160815
  Serious: Yes (Other)
  Sender: FDA-Public Use
  Company Number: ES-FRI-1000085197

PATIENT

DRUGS (3)
  1. ASENAPINE [Suspect]
     Active Substance: ASENAPINE
     Route: 065
  2. SINTROM [Concomitant]
     Active Substance: ACENOCOUMAROL
  3. OLANZAPINE. [Suspect]
     Active Substance: OLANZAPINE
     Route: 065

REACTIONS (1)
  - Embolism [Unknown]
